FAERS Safety Report 12134715 (Version 4)
Quarter: 2016Q2

REPORT INFORMATION
  Report Type: Spontaneous
  Country: US (occurrence: US)
  Receive Date: 20160301
  Receipt Date: 20160405
  Transmission Date: 20160815
  Serious: Yes (Life-Threatening, Hospitalization, Other)
  Sender: FDA-Public Use
  Company Number: US-ALEXION PHARMACEUTICALS INC-A201601264

PATIENT
  Age: 42 Year
  Sex: Male

DRUGS (5)
  1. HEPARIN [Suspect]
     Active Substance: HEPARIN SODIUM
     Indication: THROMBOSIS PROPHYLAXIS
     Dosage: UNK
     Route: 058
     Dates: end: 2016
  2. HEPARIN [Suspect]
     Active Substance: HEPARIN SODIUM
     Dosage: TO FLUSH IV LINES
     Route: 042
  3. SOLIRIS [Suspect]
     Active Substance: ECULIZUMAB
     Dosage: 1200 MG, Q2W
     Route: 042
  4. COUMADIN [Concomitant]
     Active Substance: WARFARIN SODIUM
     Indication: THROMBOSIS PROPHYLAXIS
     Dosage: UNK
     Route: 065
     Dates: end: 201602
  5. SOLIRIS [Suspect]
     Active Substance: ECULIZUMAB
     Indication: HAEMOLYTIC URAEMIC SYNDROME
     Dosage: 900 MG, QW
     Route: 042

REACTIONS (6)
  - Platelet count decreased [Not Recovered/Not Resolved]
  - Renal haematoma [Unknown]
  - Renal impairment [Not Recovered/Not Resolved]
  - Medication error [Not Recovered/Not Resolved]
  - Heparin-induced thrombocytopenia [Unknown]
  - Antiphospholipid antibodies positive [Not Recovered/Not Resolved]

NARRATIVE: CASE EVENT DATE: 201603
